FAERS Safety Report 5702694-7 (Version None)
Quarter: 2008Q2

REPORT INFORMATION
  Report Type: 
  Country: None (occurrence: None)
  Receive Date: 20080411
  Receipt Date: 20080402
  Transmission Date: 20081010
  Serious: Yes (Other)
  Sender: FDA-Public Use
  Company Number: US-JNJFOC-20080401136

PATIENT
  Sex: Female
  Weight: 61.24 kg

DRUGS (2)
  1. REMICADE [Suspect]
     Indication: CROHN'S DISEASE
     Route: 042
  2. PENTASA [Concomitant]

REACTIONS (7)
  - ADVERSE DRUG REACTION [None]
  - CROHN'S DISEASE [None]
  - EATING DISORDER SYMPTOM [None]
  - FATIGUE [None]
  - LIMB DISCOMFORT [None]
  - NAUSEA [None]
  - NERVE INJURY [None]
